FAERS Safety Report 7600869-3 (Version None)
Quarter: 2011Q3

REPORT INFORMATION
  Report Type: 
  Country: None (occurrence: None)
  Receive Date: 20110711
  Receipt Date: 20110706
  Transmission Date: 20111222
  Serious: Yes (Hospitalization)
  Sender: FDA-Public Use
  Company Number: KR-ELI_LILLY_AND_COMPANY-KR201105008112

PATIENT
  Age: 59 Year
  Sex: Female

DRUGS (3)
  1. HUMALOG MIX 75/25 [Suspect]
     Dosage: 10 U, OTHER
     Dates: start: 20100101
  2. HUMALOG MIX 75/25 [Suspect]
     Indication: TYPE 2 DIABETES MELLITUS
     Dosage: 14 U, EACH MORNING
     Dates: start: 20100101
  3. HUMALOG MIX 75/25 [Suspect]
     Dosage: 12 U, EACH EVENING
     Dates: start: 20100101

REACTIONS (2)
  - LOWER LIMB FRACTURE [None]
  - LIGAMENT SPRAIN [None]
